FAERS Safety Report 6310292-X (Version None)
Quarter: 2009Q3

REPORT INFORMATION
  Report Type: 
  Country: None (occurrence: None)
  Receive Date: 20090811
  Receipt Date: 20090728
  Transmission Date: 20100115
  Serious: Yes (Death)
  Sender: FDA-Public Use
  Company Number: KV200800138

PATIENT
  Age: 73 Year
  Sex: Male

DRUGS (5)
  1. MORPHINE SULFATE [Suspect]
     Indication: CANCER PAIN
     Dosage: 30 MG, 1 TABLET, ORAL
     Route: 048
     Dates: start: 20080101
  2. UNSPECIFIED HYPERTENSION MEDICATION(S) [Concomitant]
  3. UNSPECIFIED STOMACH MEDICATION(S) [Concomitant]
  4. UNSPECIFIED WATER PILL [Concomitant]
  5. COZAAR [Concomitant]

REACTIONS (1)
  - PRODUCT QUALITY ISSUE [None]
